FAERS Safety Report 6164288-1 (Version None)
Quarter: 2009Q2

REPORT INFORMATION
  Report Type: 
  Country: None (occurrence: None)
  Receive Date: 20090422
  Receipt Date: 20090407
  Transmission Date: 20091009
  Serious: Yes (Disabling, Other)
  Sender: FDA-Public Use
  Company Number: FR-PFIZER INC-2009194120

PATIENT

DRUGS (2)
  1. NEURONTIN [Suspect]
     Indication: EPILEPSY
     Dosage: 2 DF, 1X/DAY
     Route: 064
     Dates: start: 20051122, end: 20060804
  2. IMUREL [Suspect]
     Indication: AUTOIMMUNE HEPATITIS
     Dosage: 2 DF, 1X/DAY
     Route: 064
     Dates: start: 20051122, end: 20060804

REACTIONS (3)
  - DEVELOPMENTAL DELAY [None]
  - DRUG EXPOSURE DURING PREGNANCY [None]
  - FOETAL GROWTH RETARDATION [None]
